FAERS Safety Report 8318222-6 (Version None)
Quarter: 2012Q2

REPORT INFORMATION
  Report Type: 
  Country: None (occurrence: None)
  Receive Date: 20120427
  Receipt Date: 20120417
  Transmission Date: 20120825
  Serious: Yes (Other)
  Sender: FDA-Public Use
  Company Number: DE-RANBAXY-2012US-55537

PATIENT

DRUGS (14)
  1. CYCLOBENZAPRINE HCL [Suspect]
     Indication: PRODUCT USED FOR UNKNOWN INDICATION
     Dosage: 10MG, BID
     Route: 065
     Dates: start: 20110101
  2. IBUPROFEN [Suspect]
     Indication: SYSTEMIC LUPUS ERYTHEMATOSUS
  3. LYRICA [Suspect]
     Indication: FIBROMYALGIA
     Dosage: 75MG DAILY
     Route: 065
     Dates: start: 20110315, end: 20110318
  4. METFORMIN HCL [Concomitant]
     Indication: DIABETES MELLITUS
     Dosage: 500MG,TID
     Route: 065
  5. CYCLOBENZAPRINE HCL [Suspect]
     Dosage: 10MG, QD
     Route: 065
  6. NAPROXEN [Suspect]
     Indication: FIBROMYALGIA
     Dosage: 500MG,TID
     Route: 065
  7. IBUPROFEN [Suspect]
     Indication: RHEUMATOID ARTHRITIS
     Dosage: 800MG, TID
     Route: 065
     Dates: start: 20110101
  8. LIPITOR [Suspect]
     Indication: PRODUCT USED FOR UNKNOWN INDICATION
     Route: 065
  9. GABAPENTIN [Concomitant]
     Indication: SYSTEMIC LUPUS ERYTHEMATOSUS
  10. NAPROXEN [Suspect]
     Indication: RHEUMATOID ARTHRITIS
  11. PROTONIX [Suspect]
     Indication: GASTRITIS
     Dosage: 40MG DAILY
     Route: 048
     Dates: start: 20040101
  12. VITAMIN B-12 [Concomitant]
     Indication: ANAEMIA
     Route: 065
  13. CLARITIN [Concomitant]
     Indication: HYPERSENSITIVITY
     Dosage: 10MG
     Route: 065
  14. GABAPENTIN [Concomitant]
     Indication: RHEUMATOID ARTHRITIS
     Route: 065

REACTIONS (6)
  - EYE HAEMORRHAGE [None]
  - ABDOMINAL DISCOMFORT [None]
  - NAUSEA [None]
  - VISION BLURRED [None]
  - DRY MOUTH [None]
  - BOWEL MOVEMENT IRREGULARITY [None]
